FAERS Safety Report 22228751 (Version 3)
Quarter: 2023Q2

REPORT INFORMATION
  Report Type: Spontaneous
  Country: US (occurrence: US)
  Receive Date: 20230419
  Receipt Date: 20230516
  Transmission Date: 20230722
  Serious: No
  Sender: FDA-Public Use
  Company Number: US-PFIZER INC-202300162031

PATIENT
  Age: 68 Year
  Sex: Male
  Weight: 70.748 kg

DRUGS (3)
  1. PAXLOVID [Suspect]
     Active Substance: NIRMATRELVIR\RITONAVIR
     Indication: COVID-19 treatment
     Dosage: UNK
     Dates: start: 20230405, end: 20230409
  2. DESVENLAFAXINE [Concomitant]
     Active Substance: DESVENLAFAXINE
     Indication: Depression
     Dosage: UNK
     Route: 048
     Dates: start: 20181101
  3. CLONAZEPAM [Concomitant]
     Active Substance: CLONAZEPAM
     Indication: Depression
     Dosage: UNK
     Route: 048

REACTIONS (3)
  - COVID-19 [Recovering/Resolving]
  - Disease recurrence [Recovering/Resolving]
  - Dysgeusia [Recovering/Resolving]

NARRATIVE: CASE EVENT DATE: 20230405
